FAERS Safety Report 26140070 (Version 1)
Quarter: 2025Q4

REPORT INFORMATION
  Report Type: Spontaneous
  Country: US (occurrence: None)
  Receive Date: 20251209
  Receipt Date: 20251209
  Transmission Date: 20260118
  Serious: No
  Sender: FDA-CTU
  Company Number: None

PATIENT
  Age: 67 Year
  Sex: Female
  Weight: 72 kg

DRUGS (3)
  1. XIIDRA [Suspect]
     Active Substance: LIFITEGRAST
     Indication: Blepharitis
     Dosage: 0.2 DROP(S) TWICE A DAY OPHTHALMIC
     Route: 047
     Dates: start: 20251125, end: 20251128
  2. MULTI-VITAMIN [Concomitant]
     Active Substance: .ALPHA.-TOCOPHEROL ACETATE, DL-\ASCORBIC ACID\CYANOCOBALAMIN\FLUORIDE ION\FOLIC ACID\NIACIN\PYRIDOXI
  3. Cal-Mag [Concomitant]

REACTIONS (3)
  - Muscle spasms [None]
  - Balance disorder [None]
  - Dizziness postural [None]

NARRATIVE: CASE EVENT DATE: 20251128
